FAERS Safety Report 26092623 (Version 1)
Quarter: 2025Q4

REPORT INFORMATION
  Report Type: Spontaneous
  Country: CN (occurrence: CN)
  Receive Date: 20251126
  Receipt Date: 20251126
  Transmission Date: 20260117
  Serious: Yes (Hospitalization, Other)
  Sender: ALKEM
  Company Number: None

PATIENT
  Age: 30 Year
  Sex: Male
  Weight: 75 kg

DRUGS (12)
  1. MYCOPHENOLATE MOFETIL [Suspect]
     Active Substance: MYCOPHENOLATE MOFETIL
     Indication: Immunosuppressant drug therapy
     Dosage: UNK
     Route: 065
  2. MYCOPHENOLATE MOFETIL [Suspect]
     Active Substance: MYCOPHENOLATE MOFETIL
     Indication: Kidney transplant rejection
     Dosage: 0.5 GRAM, BID (TABLETS)
     Route: 065
  3. TACROLIMUS [Suspect]
     Active Substance: TACROLIMUS
     Indication: Immunosuppressant drug therapy
     Dosage: UNK
     Route: 065
  4. TACROLIMUS [Suspect]
     Active Substance: TACROLIMUS
     Indication: Kidney transplant rejection
     Dosage: 2 MILLIGRAM, QD (SUSTAINED-RELEASE CAPSULE)
     Route: 065
  5. TACROLIMUS [Suspect]
     Active Substance: TACROLIMUS
     Dosage: 1 MILLIGRAM, QD
     Route: 065
  6. TACROLIMUS [Suspect]
     Active Substance: TACROLIMUS
     Dosage: 3 MILLIGRAM, QD
     Route: 065
  7. PREDNISONE ACETATE [Suspect]
     Active Substance: PREDNISONE ACETATE
     Indication: Immunosuppressant drug therapy
     Dosage: 10 MILLIGRAM, QD
     Route: 065
  8. PREDNISONE ACETATE [Suspect]
     Active Substance: PREDNISONE ACETATE
     Indication: Kidney transplant rejection
  9. Calcium Pantosan Sulfonate [Concomitant]
     Indication: Glomerular vascular disorder
     Dosage: 0.5 GRAM, TID
     Route: 065
  10. Moxifloxacin Sodium Chloride [Concomitant]
     Indication: Anti-infective therapy
     Dosage: 0.4 GRAM, QD
     Route: 065
  11. SACCHAROMYCES CEREVISIAE [Concomitant]
     Active Substance: SACCHAROMYCES CEREVISIAE
     Indication: Gastrointestinal disorder prophylaxis
     Dosage: 0.5 GRAM, BID (SACHETS) (BLASTOSCHIZOMYCES CAPITATUS)
     Route: 065
  12. HERBALS [Concomitant]
     Active Substance: HERBALS
     Indication: Kidney transplant rejection
     Dosage: 20 MILLIGRAM, TID
     Route: 065

REACTIONS (7)
  - Acute kidney injury [Recovered/Resolved]
  - Immunosuppressant drug level increased [Recovered/Resolved]
  - Liver injury [Recovered/Resolved]
  - Pneumonia [Unknown]
  - COVID-19 [Recovered/Resolved]
  - Diarrhoea [Recovered/Resolved]
  - Overdose [Unknown]

NARRATIVE: CASE EVENT DATE: 20220101
